FAERS Safety Report 7655482-9 (Version None)
Quarter: 2011Q3

REPORT INFORMATION
  Report Type: 
  Country: None (occurrence: None)
  Receive Date: 20110804
  Receipt Date: 20110727
  Transmission Date: 20111222
  Serious: Yes (Hospitalization)
  Sender: FDA-Public Use
  Company Number: KR-ASTELLAS-2011JP003989

PATIENT
  Sex: Female

DRUGS (4)
  1. FUROSEMIDE [Concomitant]
     Dosage: 40 MG, UID/QD
     Route: 048
     Dates: start: 20110426
  2. TACROLIMUS [Suspect]
     Indication: LUPUS NEPHRITIS
     Dosage: 3 MG, UNKNOWN/D
     Route: 048
     Dates: start: 20110602, end: 20110610
  3. PREDNISOLONE [Concomitant]
     Dosage: 30 MG, UID/QD
     Route: 048
     Dates: start: 20110426
  4. ROSUVASTATIN [Concomitant]
     Dosage: 10 MG, UID/QD
     Route: 048
     Dates: start: 20110419

REACTIONS (1)
  - LUPUS ENTERITIS [None]
